FAERS Safety Report 9055282 (Version 1)
Quarter: 2013Q1

REPORT INFORMATION
  Report Type: Report from Study
  Country: DE (occurrence: DE)
  Receive Date: 20130206
  Receipt Date: 20130206
  Transmission Date: 20140127
  Serious: Yes (Hospitalization)
  Sender: FDA-Public Use
  Company Number: DE-ABBOTT-13P-062-1045831-00

PATIENT
  Age: 31 Year
  Sex: Male
  Weight: 80 kg

DRUGS (7)
  1. HUMIRA [Suspect]
     Indication: CROHN^S DISEASE
     Route: 058
     Dates: start: 20111116, end: 201211
  2. HUMIRA [Suspect]
     Route: 058
     Dates: start: 201212
  3. HUMIRA [Suspect]
     Route: 058
  4. FERINJECT [Concomitant]
     Indication: PRODUCT USED FOR UNKNOWN INDICATION
  5. METAMIZOLE [Concomitant]
     Indication: PRODUCT USED FOR UNKNOWN INDICATION
  6. METRONIDAZOLE [Concomitant]
     Indication: PRODUCT USED FOR UNKNOWN INDICATION
  7. PANTOZOL [Concomitant]
     Indication: PRODUCT USED FOR UNKNOWN INDICATION

REACTIONS (1)
  - Subileus [Recovered/Resolved]
